FAERS Safety Report 5201689-X (Version None)
Quarter: 2006Q4

REPORT INFORMATION
  Report Type: 
  Country: None (occurrence: None)
  Receive Date: 20061012
  Receipt Date: 20060608
  Transmission Date: 20070319
  Serious: Yes (Other)
  Sender: FDA-Public Use
  Company Number: 14238

PATIENT
  Age: 24 Year
  Sex: Female

DRUGS (3)
  1. METHOTREXATE [Suspect]
     Indication: JUVENILE ARTHRITIS
  2. AZATHIOPRINE [Suspect]
     Indication: PNEUMONITIS
  3. STEROIDS [Concomitant]

REACTIONS (2)
  - CUTANEOUS VASCULITIS [None]
  - DRUG INTERACTION [None]
